FAERS Safety Report 4754823-X (Version None)
Quarter: 2005Q3

REPORT INFORMATION
  Report Type: 
  Country: None (occurrence: None)
  Receive Date: 20050825
  Receipt Date: 20050817
  Transmission Date: 20060218
  Serious: Yes (Hospitalization)
  Sender: FDA-Public Use
  Company Number: 2005-06-1968

PATIENT
  Age: 78 Year
  Sex: Female

DRUGS (6)
  1. CLARINEX [Suspect]
     Indication: COUGH
     Dosage: 5 MG QD ORAL
     Route: 048
     Dates: start: 20050527, end: 20050605
  2. NEO-CODION (CODEINE CAMSYLATE/POTASSIUM GUAIACOLSULFONATE/GRINDELIA) [Concomitant]
  3. VASTAREL [Concomitant]
  4. DAFLON [Concomitant]
  5. TANAKAN [Concomitant]
  6. CLIMAXOL [Concomitant]

REACTIONS (8)
  - ATRIAL FIBRILLATION [None]
  - BLOOD PRESSURE DECREASED [None]
  - CARDIAC FAILURE [None]
  - CHEST X-RAY ABNORMAL [None]
  - DRUG INTERACTION [None]
  - LOSS OF CONSCIOUSNESS [None]
  - MALAISE [None]
  - TACHYARRHYTHMIA [None]
